FAERS Safety Report 11151539 (Version 1)
Quarter: 2015Q2

REPORT INFORMATION
  Report Type: Report from Study
  Country: US (occurrence: US)
  Receive Date: 20150601
  Receipt Date: 20150601
  Transmission Date: 20150821
  Serious: Yes (Hospitalization)
  Sender: FDA-Public Use
  Company Number: US-BIOGENIDEC-2015BI073620

PATIENT
  Age: 61 Year
  Sex: Male
  Weight: 77 kg

DRUGS (1)
  1. TECFIDERA [Suspect]
     Active Substance: DIMETHYL FUMARATE
     Indication: MULTIPLE SCLEROSIS
     Route: 048
     Dates: start: 20131103

REACTIONS (4)
  - Haemoptysis [Unknown]
  - Memory impairment [Not Recovered/Not Resolved]
  - Helicobacter infection [Unknown]
  - Hernia [Unknown]

NARRATIVE: CASE EVENT DATE: 20150415
